FAERS Safety Report 7345507-2 (Version None)
Quarter: 2011Q1

REPORT INFORMATION
  Report Type: 
  Country: None (occurrence: None)
  Receive Date: 20110310
  Receipt Date: 20110228
  Transmission Date: 20110831
  Serious: Yes (Hospitalization)
  Sender: FDA-Public Use
  Company Number: US-ASTRAZENECA-2007UW20811

PATIENT
  Age: 73 Year
  Sex: Female
  Weight: 53.1 kg

DRUGS (2)
  1. SORIATANE [Concomitant]
  2. PULMICORT FLEXHALER [Suspect]
     Indication: ASTHMA
     Dosage: 180 MCG 2 INHALATIONS TWICE DAILY
     Route: 055
     Dates: start: 20070801

REACTIONS (5)
  - ASTHENIA [None]
  - CONDITION AGGRAVATED [None]
  - PERTUSSIS [None]
  - DYSPNOEA [None]
  - INCORRECT DOSE ADMINISTERED [None]
